FAERS Safety Report 17555916 (Version 1)
Quarter: 2020Q1

REPORT INFORMATION
  Report Type: Report from Study
  Country: DE (occurrence: DE)
  Receive Date: 20200318
  Receipt Date: 20200318
  Transmission Date: 20200409
  Serious: Yes (Other)
  Sender: FDA-Public Use
  Company Number: DE-MYLANLABS-2020M1027286

PATIENT
  Sex: Female
  Weight: 73 kg

DRUGS (4)
  1. KISQALI [Suspect]
     Active Substance: RIBOCICLIB
     Indication: BREAST CANCER METASTATIC
     Dosage: 600 MG, QD
     Route: 048
     Dates: start: 20180730, end: 20180809
  2. ANASTROZOLE. [Suspect]
     Active Substance: ANASTROZOLE
     Indication: BREAST CANCER METASTATIC
     Dosage: 1 MG, QD
     Route: 048
     Dates: start: 20180720
  3. ANASTROZOLE. [Suspect]
     Active Substance: ANASTROZOLE
     Dosage: 600 MG (SCHEMA 21 DAYS INTAKE THAN7 DAYS PAUSE)
     Route: 048
     Dates: start: 20191224
  4. KISQALI [Suspect]
     Active Substance: RIBOCICLIB
     Dosage: 600 MG, QD (FOR 3 WEEKS, 1 WEEK PAUSE)
     Route: 048
     Dates: start: 20180821

REACTIONS (1)
  - Infection [Recovered/Resolved]

NARRATIVE: CASE EVENT DATE: 201912
